FAERS Safety Report 4463532-6 (Version None)
Quarter: 2004Q3

REPORT INFORMATION
  Report Type: 
  Country: None (occurrence: None)
  Receive Date: 20040928
  Receipt Date: 20040914
  Transmission Date: 20050211
  Serious: Yes (Hospitalization)
  Sender: FDA-Public Use
  Company Number: 04P-076-0270077-00

PATIENT
  Age: 69 Year
  Sex: Male
  Weight: 97.5 kg

DRUGS (13)
  1. MERIDIA [Suspect]
     Indication: OBESITY
     Dosage: 1 IN 1 D, PER ORAL
     Route: 048
     Dates: start: 20040401
  2. INSULIN [Concomitant]
  3. ACENOCOUMAROL [Concomitant]
  4. METOPROLOL [Concomitant]
  5. TRIMETAZIDINE [Concomitant]
  6. FAMOTIDINE [Concomitant]
  7. SIMVASTATIN [Concomitant]
  8. HUMULIN R [Concomitant]
  9. DIGOXIN [Concomitant]
  10. POTASSIUM CHLORIDE [Concomitant]
  11. RAMIPRIL [Concomitant]
  12. ISOSORBIDE MONOMITRATE [Concomitant]
  13. FUROSEMIDE [Concomitant]

REACTIONS (4)
  - CARDIAC FAILURE CONGESTIVE [None]
  - DECREASED ACTIVITY [None]
  - HYDROTHORAX [None]
  - PLEURISY [None]
